FAERS Safety Report 4699012-2 (Version None)
Quarter: 2005Q2

REPORT INFORMATION
  Report Type: 
  Country: None (occurrence: None)
  Receive Date: 20050624
  Receipt Date: 20050614
  Transmission Date: 20051028
  Serious: Yes (Hospitalization)
  Sender: FDA-Public Use
  Company Number: PHHO2005JP09568

PATIENT
  Age: 67 Year
  Sex: Male

DRUGS (1)
  1. DIOVAN [Suspect]
     Dosage: 80 MG, QD
     Route: 048
     Dates: start: 20030521, end: 20040128

REACTIONS (2)
  - OESOPHAGEAL CARCINOMA [None]
  - OESOPHAGEAL OPERATION [None]
